FAERS Safety Report 12486300 (Version 4)
Quarter: 2017Q4

REPORT INFORMATION
  Report Type: Report from Study
  Country: None (occurrence: BR)
  Receive Date: 20160621
  Receipt Date: 20171123
  Transmission Date: 20180320
  Serious: Yes (Other)
  Sender: FDA-Public Use
  Company Number: BR-ABBVIE-16K-020-1651774-00

PATIENT
  Age: 47 Year
  Sex: Female
  Weight: 86 kg

DRUGS (6)
  1. HUMIRA [Suspect]
     Active Substance: ADALIMUMAB
     Indication: CROHN^S DISEASE
     Route: 058
     Dates: start: 20151130
  2. HUMIRA [Suspect]
     Active Substance: ADALIMUMAB
     Route: 058
     Dates: start: 20171028
  3. BROMAZEPAM [Concomitant]
     Active Substance: BROMAZEPAM
     Indication: GASTRITIS
     Route: 048
     Dates: start: 2004
  4. RIVOTRIL [Concomitant]
     Active Substance: CLONAZEPAM
     Indication: INSOMNIA
  5. SULPIRIDE [Concomitant]
     Active Substance: SULPIRIDE
     Indication: GASTRITIS
     Route: 048
     Dates: start: 2004
  6. DIPYRONE [Concomitant]
     Active Substance: DIPYRONE
     Indication: PAIN

REACTIONS (12)
  - Mobility decreased [Unknown]
  - Laceration [Recovering/Resolving]
  - Gastrointestinal neoplasm [Recovering/Resolving]
  - Asthenia [Recovered/Resolved]
  - Mobility decreased [Recovered/Resolved]
  - Migraine [Recovered/Resolved]
  - Headache [Recovered/Resolved]
  - Pain in extremity [Not Recovered/Not Resolved]
  - Malaise [Unknown]
  - Foreign body [Unknown]
  - Feeling abnormal [Unknown]
  - Malaise [Recovered/Resolved]

NARRATIVE: CASE EVENT DATE: 20151130
